FAERS Safety Report 6937728-5 (Version None)
Quarter: 2010Q3

REPORT INFORMATION
  Report Type: 
  Country: None (occurrence: None)
  Receive Date: 20100820
  Receipt Date: 20100820
  Transmission Date: 20110219
  Serious: Yes (Hospitalization, Other)
  Sender: FDA-Public Use
  Company Number: None

PATIENT
  Sex: Female
  Weight: 61.2356 kg

DRUGS (1)
  1. OCELLA YASMIN/OCELLA: DRSP 3MG, EE.03 BARR [Suspect]
     Indication: DYSMENORRHOEA
     Dosage: 1 PILL EVERY DAY PO
     Route: 048
     Dates: start: 20090301, end: 20100301

REACTIONS (15)
  - ABDOMINAL PAIN [None]
  - CHOLECYSTITIS INFECTIVE [None]
  - CHOLELITHIASIS [None]
  - CRYING [None]
  - DRUG INEFFECTIVE [None]
  - DYSPNOEA [None]
  - ECONOMIC PROBLEM [None]
  - FLATULENCE [None]
  - HYPERVENTILATION [None]
  - IMPAIRED WORK ABILITY [None]
  - MUSCLE SPASMS [None]
  - NAUSEA [None]
  - PRESYNCOPE [None]
  - SKIN DISCOLOURATION [None]
  - STRESS [None]
